FAERS Safety Report 11701059 (Version 1)
Quarter: 2015Q4

REPORT INFORMATION
  Report Type: Spontaneous
  Country: US (occurrence: US)
  Receive Date: 20151105
  Receipt Date: 20151105
  Transmission Date: 20160304
  Serious: Yes (Other)
  Sender: FDA-Public Use
  Company Number: US-SANOFI-AVENTIS-2010SA043302

PATIENT
  Age: 70 Year
  Sex: Female

DRUGS (5)
  1. HUMALOG [Concomitant]
     Active Substance: INSULIN LISPRO
  2. LANTUS SOLOSTAR [Suspect]
     Active Substance: INSULIN GLARGINE
     Indication: TYPE 2 DIABETES MELLITUS
     Dosage: 45-50 U
     Route: 058
     Dates: start: 2010
  3. LANTUS SOLOSTAR [Suspect]
     Active Substance: INSULIN GLARGINE
     Indication: TYPE 2 DIABETES MELLITUS
     Dosage: 45-50 U
     Route: 058
     Dates: start: 2010
  4. SOLOSTAR [Suspect]
     Active Substance: DEVICE
     Indication: TYPE 2 DIABETES MELLITUS
     Dosage: DOSE 45-50 UNITES DAILY
     Dates: start: 2010
  5. SOLOSTAR [Suspect]
     Active Substance: DEVICE
     Indication: TYPE 2 DIABETES MELLITUS
     Dosage: DOSE 45-50 UNITES DAILY
     Dates: start: 2010

REACTIONS (12)
  - Breast cancer [Unknown]
  - Confusional state [Unknown]
  - Fatigue [Unknown]
  - Abdominal discomfort [Unknown]
  - Product quality issue [Recovered/Resolved]
  - Blood glucose increased [Unknown]
  - Ankle operation [Unknown]
  - Memory impairment [Unknown]
  - Insomnia [Unknown]
  - Vomiting [Unknown]
  - Injection site pain [Recovered/Resolved]
  - Feeling abnormal [Unknown]

NARRATIVE: CASE EVENT DATE: 2015
